FAERS Safety Report 15565658 (Version 1)
Quarter: 2018Q4

REPORT INFORMATION
  Report Type: Spontaneous
  Country: US (occurrence: US)
  Receive Date: 20181025
  Receipt Date: 20181025
  Transmission Date: 20190205
  Serious: No
  Sender: FDA-Public Use
  Company Number: None

PATIENT
  Age: 64 Year
  Sex: Male
  Weight: 94.8 kg

DRUGS (10)
  1. BOTOX [Suspect]
     Active Substance: ONABOTULINUMTOXINA
     Indication: DYSTONIA
     Dosage: ?          QUANTITY:1 DF DOSAGE FORM;OTHER FREQUENCY:3 MONTHS;?
     Route: 030
     Dates: start: 20180702, end: 20180703
  2. TUMERIC [Concomitant]
     Active Substance: HERBALS\TURMERIC
  3. TOPROL XL [Concomitant]
     Active Substance: METOPROLOL SUCCINATE
  4. CPAC [Concomitant]
  5. ALLOPURINOL. [Concomitant]
     Active Substance: ALLOPURINOL
  6. BEE POLLEN [Concomitant]
     Active Substance: BEE POLLEN
  7. ASPIRIN. [Concomitant]
     Active Substance: ASPIRIN
  8. BOTOX [Suspect]
     Active Substance: ONABOTULINUMTOXINA
     Indication: THORACIC OUTLET SYNDROME
     Dosage: ?          QUANTITY:1 DF DOSAGE FORM;OTHER FREQUENCY:3 MONTHS;?
     Route: 030
     Dates: start: 20180702, end: 20180703
  9. COQ10 [Concomitant]
     Active Substance: UBIDECARENONE
  10. OMEGA-3 ACIDS [Concomitant]
     Active Substance: OMEGA-3 FATTY ACIDS

REACTIONS (1)
  - Dysphagia [None]

NARRATIVE: CASE EVENT DATE: 20180703
